FAERS Safety Report 23688343 (Version 1)
Quarter: 2024Q1

REPORT INFORMATION
  Report Type: Spontaneous
  Country: JP (occurrence: None)
  Receive Date: 20240329
  Receipt Date: 20240329
  Transmission Date: 20240410
  Serious: Yes (Hospitalization, Disabling)
  Sender: FDA-Public Use
  Company Number: 2024A011526

PATIENT
  Age: 72 Year
  Sex: Male
  Weight: 55 kg

DRUGS (10)
  1. IMFINZI [Suspect]
     Active Substance: DURVALUMAB
     Indication: Bile duct cancer
     Dosage: 1500.0MG UNKNOWN
     Route: 041
     Dates: start: 20231207, end: 20231207
  2. CISPLATIN [Suspect]
     Active Substance: CISPLATIN
     Indication: Bile duct cancer
     Route: 041
     Dates: start: 20231207, end: 20240103
  3. GEMZAR [Suspect]
     Active Substance: GEMCITABINE HYDROCHLORIDE
     Indication: Bile duct cancer
     Route: 041
     Dates: start: 20231207, end: 20240103
  4. FEBUXOSTAT [Suspect]
     Active Substance: FEBUXOSTAT
     Indication: Hyperuricaemia
     Route: 048
  5. MAGNESIUM OXIDE [Suspect]
     Active Substance: MAGNESIUM OXIDE
     Indication: Gastritis
     Route: 048
  6. VALSARTAN [Suspect]
     Active Substance: VALSARTAN
     Indication: Hypertension
     Route: 048
  7. SENNOSIDES [Suspect]
     Active Substance: SENNOSIDES
     Indication: Constipation
     Route: 048
  8. PANCRELIPASE [Suspect]
     Active Substance: PANCRELIPASE
     Indication: Pancreatic failure
     Route: 048
  9. VONOPRAZAN FUMARATE [Suspect]
     Active Substance: VONOPRAZAN FUMARATE
     Indication: Gastrooesophageal reflux disease
     Route: 048
  10. URSO [Suspect]
     Active Substance: URSODIOL
     Indication: Biliary tract disorder
     Route: 048

REACTIONS (5)
  - Immune-mediated myasthenia gravis [Recovering/Resolving]
  - Atrioventricular block complete [Recovering/Resolving]
  - Immune-mediated myositis [Not Recovered/Not Resolved]
  - Myocarditis [Recovered/Resolved]
  - Liver disorder [Unknown]

NARRATIVE: CASE EVENT DATE: 20240103
